FAERS Safety Report 10563527 (Version 4)
Quarter: 2015Q2

REPORT INFORMATION
  Report Type: Spontaneous
  Country: US (occurrence: US)
  Receive Date: 20141104
  Receipt Date: 20150403
  Transmission Date: 20150821
  Serious: Yes (Death, Hospitalization, Other)
  Sender: FDA-Public Use
  Company Number: US-PFIZER INC-2014270258

PATIENT
  Age: 80 Year
  Sex: Female
  Weight: 39.91 kg

DRUGS (1)
  1. VFEND [Suspect]
     Active Substance: VORICONAZOLE
     Indication: ASPERGILLUS INFECTION
     Dosage: UNK

REACTIONS (5)
  - Death [Fatal]
  - Dyspnoea [Recovered/Resolved]
  - Disease progression [Unknown]
  - Hypoxia [Recovered/Resolved]
  - Aspergillus infection [Unknown]

NARRATIVE: CASE EVENT DATE: 20150227
